FAERS Safety Report 21351685 (Version 1)
Quarter: 2022Q3

REPORT INFORMATION
  Report Type: Spontaneous
  Country: TR (occurrence: TR)
  Receive Date: 20220919
  Receipt Date: 20220919
  Transmission Date: 20221027
  Serious: Yes (Other)
  Sender: FDA-Public Use
  Company Number: TR-PAIPHARMA-2022-TR-000144

PATIENT
  Age: 17 Year
  Sex: Male

DRUGS (1)
  1. OXYBUTYNIN CHLORIDE [Suspect]
     Active Substance: OXYBUTYNIN CHLORIDE
     Indication: Product used for unknown indication
     Dosage: EXCEEDING 50 MG DAILY

REACTIONS (7)
  - Drug abuse [Recovered/Resolved]
  - Depressed mood [Recovered/Resolved]
  - Weight decreased [Recovered/Resolved]
  - Insomnia [Recovered/Resolved]
  - Abnormal behaviour [Recovered/Resolved]
  - Mydriasis [Recovered/Resolved]
  - Decreased appetite [Recovered/Resolved]
